FAERS Safety Report 5113527-4 (Version None)
Quarter: 2006Q3

REPORT INFORMATION
  Report Type: 
  Country: None (occurrence: None)
  Receive Date: 20060925
  Receipt Date: 20060914
  Transmission Date: 20061208
  Serious: Yes (Other)
  Sender: FDA-Public Use
  Company Number: PHEH2006US11836

PATIENT
  Age: 62 Year
  Sex: Female

DRUGS (7)
  1. DIOVAN [Suspect]
     Indication: HYPERTENSION
     Dosage: 40MG, 3 TABS QD
     Dates: start: 20020101, end: 20060830
  2. DIOVAN [Suspect]
     Dosage: 40MG, 2 TABS QD
     Dates: start: 20060831, end: 20060907
  3. DIOVAN [Suspect]
     Dosage: 40MG, 3 TABS, QD
     Dates: start: 20060908
  4. ATENOLOL [Concomitant]
     Indication: HYPERTENSION
     Dosage: 100MG , UNK
     Dates: start: 20020101
  5. XANAX [Concomitant]
     Indication: ANXIETY
     Dosage: 0.25 MG, QD
  6. PRILOSEC [Concomitant]
     Indication: GASTROOESOPHAGEAL REFLUX DISEASE
     Dosage: UNK, UNK
  7. COMPAZINE [Concomitant]
     Indication: NAUSEA
     Dosage: 0.5 MG, PRN

REACTIONS (10)
  - BLOOD PRESSURE INADEQUATELY CONTROLLED [None]
  - BLOOD PRESSURE INCREASED [None]
  - DIZZINESS [None]
  - FALL [None]
  - HYPOAESTHESIA [None]
  - JOINT SPRAIN [None]
  - MUSCULAR WEAKNESS [None]
  - PAIN [None]
  - SOMNOLENCE [None]
  - TRANSIENT ISCHAEMIC ATTACK [None]
